FAERS Safety Report 9685708 (Version 4)
Quarter: 2014Q1

REPORT INFORMATION
  Report Type: Spontaneous
  Country: US (occurrence: US)
  Receive Date: 20131113
  Receipt Date: 20140214
  Transmission Date: 20141002
  Serious: No
  Sender: FDA-Public Use
  Company Number: US-PFIZER INC-2013318348

PATIENT
  Sex: Female

DRUGS (2)
  1. ARTHROTEC [Suspect]
     Dosage: UNK
  2. ARTHROTEC [Suspect]
     Dosage: UNK

REACTIONS (1)
  - Back pain [Unknown]
